FAERS Safety Report 7921259 (Version 4)
Quarter: 2013Q1

REPORT INFORMATION
  Report Type: Spontaneous
  Country: US (occurrence: US)
  Receive Date: 20110429
  Receipt Date: 20130102
  Transmission Date: 20140127
  Serious: Yes (Other)
  Sender: FDA-Public Use
  Company Number: US-ASTRAZENECA-2010SE22532

PATIENT
  Age: 56 Year
  Sex: Female
  Weight: 99.3 kg

DRUGS (2)
  1. NEXIUM [Suspect]
     Indication: GASTROOESOPHAGEAL REFLUX DISEASE
     Route: 048
  2. LISINOPRIL [Suspect]
     Route: 048

REACTIONS (19)
  - Intervertebral disc protrusion [Unknown]
  - Aphagia [Unknown]
  - Type 2 diabetes mellitus [Unknown]
  - Hypertension [Unknown]
  - Stress [Unknown]
  - Back pain [Unknown]
  - Weight increased [Unknown]
  - Haemorrhoids [Unknown]
  - Haemorrhoidal haemorrhage [Unknown]
  - Hypothyroidism [Unknown]
  - Hypertriglyceridaemia [Unknown]
  - Low density lipoprotein increased [Unknown]
  - Constipation [Unknown]
  - Insomnia [Unknown]
  - Dysphonia [Unknown]
  - Abdominal pain upper [Unknown]
  - Depression [Unknown]
  - Headache [Unknown]
  - Drug dose omission [Unknown]
